FAERS Safety Report 15592936 (Version 1)
Quarter: 2018Q4

REPORT INFORMATION
  Report Type: Spontaneous
  Country: ES (occurrence: ES)
  Receive Date: 20181106
  Receipt Date: 20181106
  Transmission Date: 20190205
  Serious: Yes (Other)
  Sender: FDA-Public Use
  Company Number: ES-INGENUS PHARMACEUTICALS, LLC-INF201810-001041

PATIENT
  Age: 74 Year
  Sex: Male

DRUGS (2)
  1. TAXOL [Suspect]
     Active Substance: PACLITAXEL
     Indication: SQUAMOUS CELL CARCINOMA
  2. CARBOPLATIN. [Suspect]
     Active Substance: CARBOPLATIN
     Indication: SQUAMOUS CELL CARCINOMA

REACTIONS (2)
  - Pneumoperitoneum [Recovered/Resolved]
  - Pneumatosis intestinalis [Recovered/Resolved]
